FAERS Safety Report 26011078 (Version 2)
Quarter: 2025Q4

REPORT INFORMATION
  Report Type: Spontaneous
  Country: EU (occurrence: EU)
  Receive Date: 20251107
  Receipt Date: 20251219
  Transmission Date: 20260118
  Serious: Yes (Other)
  Sender: AMGEN
  Company Number: EU-AMGEN-FRASP2025216831

PATIENT
  Age: 38 Year
  Sex: Male

DRUGS (1)
  1. INEBILIZUMAB [Suspect]
     Active Substance: INEBILIZUMAB
     Indication: Immunoglobulin G4 related disease
     Dosage: UNK (SUSPENDED)
     Route: 065
     Dates: start: 2025

REACTIONS (2)
  - Immunoglobulin G4 related disease [Unknown]
  - Tracheitis [Recovering/Resolving]

NARRATIVE: CASE EVENT DATE: 20250101
